FAERS Safety Report 4519991-3 (Version None)
Quarter: 2004Q4

REPORT INFORMATION
  Report Type: 
  Country: None (occurrence: None)
  Receive Date: 20041207
  Receipt Date: 20041130
  Transmission Date: 20050328
  Serious: Yes (Life-Threatening, Disabling)
  Sender: FDA-Public Use
  Company Number: US-MERCK-0412USA00100

PATIENT
  Age: 41 Year
  Sex: Female

DRUGS (4)
  1. VIOXX [Suspect]
     Indication: PAIN MANAGEMENT
     Route: 048
     Dates: start: 20010101, end: 20030101
  2. CELEBREX [Concomitant]
     Route: 065
  3. NEXIUM [Concomitant]
     Route: 065
  4. [THERAPY UNSPECIFIED] [Concomitant]
     Route: 065

REACTIONS (3)
  - ABDOMINAL PAIN [None]
  - CHEST PAIN [None]
  - PAIN IN EXTREMITY [None]
